FAERS Safety Report 4570268-X (Version None)
Quarter: 2005Q1

REPORT INFORMATION
  Report Type: 
  Country: None (occurrence: None)
  Receive Date: 20050127
  Receipt Date: 20050127
  Transmission Date: 20050727
  Serious: Yes (Hospitalization)
  Sender: FDA-Public Use
  Company Number: None

PATIENT
  Age: 59 Year
  Sex: Female
  Weight: 57 kg

DRUGS (7)
  1. VELCADE [Suspect]
     Indication: WALDENSTROM'S MACROGLOBULINAEMIA
     Dosage: 2.15MG  DAY 1,4,8,1   1/CY   INTRAVENOUS
     Route: 042
     Dates: start: 20041129, end: 20041209
  2. PREDNISONE [Concomitant]
  3. VICODIN [Concomitant]
  4. VALIUM [Concomitant]
  5. TORADOL [Concomitant]
  6. FAMVIR [Concomitant]
  7. MORPHINE DRIP [Concomitant]

REACTIONS (6)
  - BUTTOCK PAIN [None]
  - DIFFICULTY IN WALKING [None]
  - DISEASE PROGRESSION [None]
  - HERPES ZOSTER [None]
  - JOINT RANGE OF MOTION DECREASED [None]
  - RASH [None]
